FAERS Safety Report 5202581-7 (Version None)
Quarter: 2007Q1

REPORT INFORMATION
  Report Type: 
  Country: None (occurrence: None)
  Receive Date: 20070109
  Receipt Date: 20061228
  Transmission Date: 20070707
  Serious: Yes (Death, Hospitalization, Other)
  Sender: FDA-Public Use
  Company Number: US-PFIZER INC-2005168238

PATIENT
  Sex: Female
  Weight: 104.3 kg

DRUGS (1)
  1. BEXTRA [Suspect]
     Indication: ARTHRITIS
     Dates: start: 20030101, end: 20041016

REACTIONS (15)
  - ACIDOSIS [None]
  - ACUTE MYOCARDIAL INFARCTION [None]
  - ASTHENIA [None]
  - ATRIOVENTRICULAR BLOCK [None]
  - CARDIOVASCULAR DISORDER [None]
  - COLONIC POLYP [None]
  - DIABETIC NEPHROPATHY [None]
  - DYSPNOEA [None]
  - GASTRITIS [None]
  - HEART RATE IRREGULAR [None]
  - MYOCARDIAL INFARCTION [None]
  - PULMONARY EMBOLISM [None]
  - PULMONARY HYPERTENSION [None]
  - PULMONARY OEDEMA [None]
  - RENAL FAILURE CHRONIC [None]
